FAERS Safety Report 10036251 (Version 1)
Quarter: 2014Q1

REPORT INFORMATION
  Report Type: Report from Study
  Country: IT (occurrence: IT)
  Receive Date: 20140325
  Receipt Date: 20140325
  Transmission Date: 20141002
  Serious: Yes (Other)
  Sender: FDA-Public Use
  Company Number: IT-BAXTER-2014BAX014137

PATIENT
  Sex: 0

DRUGS (5)
  1. SODIUM CHLORIDE 0.9% WET BAXTER [Suspect]
     Indication: DEHYDRATION
     Dosage: 1 ML/KG/MIN FOR 12 HOURS
     Route: 065
  2. HEPARIN [Concomitant]
     Indication: PERCUTANEOUS CORONARY INTERVENTION
     Dosage: 70-100 IU/KG
     Route: 040
  3. ASPIRIN [Concomitant]
     Indication: PERCUTANEOUS CORONARY INTERVENTION
     Dosage: 162 MG OR MORE
     Route: 065
  4. CLOPIDOGREL [Concomitant]
     Indication: PERCUTANEOUS CORONARY INTERVENTION
     Dosage: 300/600 MG
     Route: 065
  5. VISIPAQUE [Concomitant]
     Indication: PRODUCT USED FOR UNKNOWN INDICATION
     Route: 065

REACTIONS (1)
  - Shock [Unknown]
